FAERS Safety Report 24906084 (Version 4)
Quarter: 2025Q3

REPORT INFORMATION
  Report Type: Report from Study
  Country: JP (occurrence: JP)
  Receive Date: 20250130
  Receipt Date: 20250806
  Transmission Date: 20251020
  Serious: Yes (Other)
  Sender: ALEXION PHARMACEUTICALS
  Company Number: JP-AstraZeneca-CH-00686609A

PATIENT
  Age: 83 Year
  Sex: Male

DRUGS (16)
  1. DANICOPAN [Suspect]
     Active Substance: DANICOPAN
     Indication: Paroxysmal nocturnal haemoglobinuria
     Dosage: 450 MILLIGRAM, TID
     Dates: start: 20240621, end: 20240822
  2. DANICOPAN [Suspect]
     Active Substance: DANICOPAN
     Dosage: 300 MILLIGRAM, TID
     Dates: start: 20240823, end: 20240905
  3. DANICOPAN [Suspect]
     Active Substance: DANICOPAN
     Dosage: 150 MILLIGRAM, TID
     Dates: start: 20240906, end: 20240926
  4. DANICOPAN [Suspect]
     Active Substance: DANICOPAN
     Dosage: 100 MILLIGRAM, TID
     Dates: start: 20250106, end: 20250120
  5. ULTOMIRIS [Suspect]
     Active Substance: RAVULIZUMAB-CWVZ
     Indication: Paroxysmal nocturnal haemoglobinuria
     Dosage: 3300 MILLIGRAM, Q8W
     Route: 065
     Dates: start: 20221027
  6. AMLODIPINE [Concomitant]
     Active Substance: AMLODIPINE BESYLATE
  7. TRICHLORMETHIAZIDE [Concomitant]
     Active Substance: TRICHLORMETHIAZIDE
  8. ATOVAQUONE [Concomitant]
     Active Substance: ATOVAQUONE
  9. ESOMEPRAZOLE [Concomitant]
     Active Substance: ESOMEPRAZOLE
  10. ALFACALCIDOL [Concomitant]
     Active Substance: ALFACALCIDOL
     Dates: start: 20240301, end: 20250105
  11. FLUCONAZOLE [Concomitant]
     Active Substance: FLUCONAZOLE
  12. PREDONINE [Concomitant]
     Active Substance: PREDNISOLONE
     Indication: Paroxysmal nocturnal haemoglobinuria
  13. PREDONINE [Concomitant]
     Active Substance: PREDNISOLONE
     Dosage: 2 TO 5 MILLIGRAM, QD
     Dates: start: 20240202, end: 20240802
  14. URSODIOL [Concomitant]
     Active Substance: URSODIOL
     Dosage: 600 MILLIGRAM, QD
     Dates: start: 20240816
  15. URSODIOL [Concomitant]
     Active Substance: URSODIOL
  16. FOLIC ACID [Concomitant]
     Active Substance: FOLIC ACID

REACTIONS (1)
  - Drug-induced liver injury [Recovered/Resolved]

NARRATIVE: CASE EVENT DATE: 20240816
